FAERS Safety Report 7797684-7 (Version None)
Quarter: 2011Q4

REPORT INFORMATION
  Report Type: 
  Country: None (occurrence: None)
  Receive Date: 20111003
  Receipt Date: 20110921
  Transmission Date: 20120403
  Serious: Yes (Hospitalization)
  Sender: FDA-Public Use
  Company Number: DSA_46951_2011

PATIENT
  Age: 52 Year
  Sex: Female

DRUGS (6)
  1. IRBESARTAN [Concomitant]
  2. DILTIAZEM HYDROCHLORIDE [Suspect]
     Indication: PRODUCT USED FOR UNKNOWN INDICATION
     Dosage: (200 MG QD ORAL, (DF ORAL)
     Route: 048
     Dates: start: 20110101, end: 20110101
  3. DILTIAZEM HYDROCHLORIDE [Suspect]
     Indication: PRODUCT USED FOR UNKNOWN INDICATION
     Dosage: (200 MG QD ORAL, (DF ORAL)
     Route: 048
     Dates: start: 20110501, end: 20110601
  4. HUMALOG [Concomitant]
  5. LEVEMIR [Concomitant]
  6. ACITEL [Concomitant]

REACTIONS (5)
  - CHEST PAIN [None]
  - BACK PAIN [None]
  - DYSPNOEA [None]
  - TINNITUS [None]
  - HEART RATE INCREASED [None]
